FAERS Safety Report 14763909 (Version 2)
Quarter: 2018Q4

REPORT INFORMATION
  Report Type: Report from Study
  Country: CA (occurrence: CA)
  Receive Date: 20180416
  Receipt Date: 20181214
  Transmission Date: 20190204
  Serious: Yes (Death)
  Sender: FDA-Public Use
  Company Number: CA-JNJFOC-20180417942

PATIENT
  Age: 38 Year
  Sex: Female
  Weight: 88 kg

DRUGS (2)
  1. IMURAN [Suspect]
     Active Substance: AZATHIOPRINE
     Indication: PRODUCT USED FOR UNKNOWN INDICATION
     Route: 065
  2. REMICADE [Suspect]
     Active Substance: INFLIXIMAB
     Indication: CROHN^S DISEASE
     Dosage: STRENGTH = 100 MG
     Route: 042
     Dates: start: 20100114

REACTIONS (3)
  - Off label use [Unknown]
  - Hepatic cancer metastatic [Fatal]
  - Product use issue [Unknown]

NARRATIVE: CASE EVENT DATE: 20100114
